FAERS Safety Report 11972824 (Version 1)
Quarter: 2016Q1

REPORT INFORMATION
  Report Type: Spontaneous
  Country: VE (occurrence: VE)
  Receive Date: 20160128
  Receipt Date: 20160128
  Transmission Date: 20160526
  Serious: Yes (Hospitalization)
  Sender: FDA-Public Use
  Company Number: PHHY2016VE011374

PATIENT
  Sex: Female

DRUGS (1)
  1. SANDIMMUN NEORAL [Suspect]
     Active Substance: CYCLOSPORINE
     Indication: MYELODYSPLASTIC SYNDROME
     Dosage: 300 MG, QD
     Route: 048

REACTIONS (4)
  - Product use issue [Unknown]
  - Liver disorder [Recovering/Resolving]
  - Gastric disorder [Recovering/Resolving]
  - Renal disorder [Recovering/Resolving]
